FAERS Safety Report 8758593 (Version 1)
Quarter: 2012Q4

REPORT INFORMATION
  Report Type: Spontaneous
  Country: US (occurrence: None)
  Receive Date: 20120828
  Receipt Date: 20120828
  Transmission Date: 20130627
  Serious: Yes (Hospitalization)
  Sender: FDA-Public Use
  Company Number: None

PATIENT
  Age: 84 Year
  Sex: Male

DRUGS (1)
  1. SUTENT [Suspect]
     Indication: LIVER, CANCER OF
     Route: 048
     Dates: start: 201108

REACTIONS (1)
  - Pulmonary embolism [None]
